FAERS Safety Report 12493326 (Version 1)
Quarter: 2016Q2

REPORT INFORMATION
  Report Type: Spontaneous
  Country: US (occurrence: US)
  Receive Date: 20160623
  Receipt Date: 20160623
  Transmission Date: 20160815
  Serious: Yes (Other)
  Sender: FDA-Public Use
  Company Number: US-UNITED THERAPEUTICS-UNT-2016-002982

PATIENT
  Age: 39 Year
  Sex: Female
  Weight: 103.86 kg

DRUGS (5)
  1. REVATIO [Concomitant]
     Active Substance: SILDENAFIL CITRATE
     Indication: PRODUCT USED FOR UNKNOWN INDICATION
  2. REMODULIN [Suspect]
     Active Substance: TREPROSTINIL
     Indication: PULMONARY ARTERIAL HYPERTENSION
     Dosage: 0.098 ?G/KG, CONTINUING
     Route: 058
     Dates: start: 20111207
  3. REMODULIN [Suspect]
     Active Substance: TREPROSTINIL
     Dosage: UNK
     Route: 041
     Dates: start: 201602
  4. REMODULIN [Suspect]
     Active Substance: TREPROSTINIL
     Dosage: 0.103 ?G/KG, CONTINUING
     Route: 058
  5. TRACLEER [Concomitant]
     Active Substance: BOSENTAN
     Indication: PRODUCT USED FOR UNKNOWN INDICATION

REACTIONS (18)
  - Joint swelling [Unknown]
  - Pain in jaw [Unknown]
  - Fall [Unknown]
  - Infusion site infection [Unknown]
  - Injury [Unknown]
  - Loss of consciousness [Unknown]
  - Arthralgia [Unknown]
  - Seizure [Unknown]
  - Diarrhoea [Unknown]
  - Head injury [Unknown]
  - Pain in extremity [Unknown]
  - Contusion [Unknown]
  - Constipation [Unknown]
  - Nausea [Unknown]
  - Feeling hot [Unknown]
  - Headache [Unknown]
  - Fatigue [Unknown]
  - Neck pain [Unknown]

NARRATIVE: CASE EVENT DATE: 201602
